FAERS Safety Report 4579199-2 (Version None)
Quarter: 2005Q1

REPORT INFORMATION
  Report Type: 
  Country: None (occurrence: None)
  Receive Date: 20050209
  Receipt Date: 20050209
  Transmission Date: 20050727
  Serious: Yes (Other)
  Sender: FDA-Public Use
  Company Number: None

PATIENT
  Age: 79 Year
  Sex: Male
  Weight: 77.1115 kg

DRUGS (2)
  1. FLOMAX [Suspect]
     Indication: BENIGN PROSTATIC HYPERPLASIA
     Dosage: 0.4MG   PER DAY   ORAL
     Route: 048
     Dates: start: 20040130, end: 20050126
  2. FLOMAX [Suspect]
     Indication: URINARY RETENTION
     Dosage: 0.4MG   PER DAY   ORAL
     Route: 048
     Dates: start: 20040130, end: 20050126

REACTIONS (2)
  - IRIS DISORDER [None]
  - PROCEDURAL COMPLICATION [None]
